FAERS Safety Report 8473001-4 (Version None)
Quarter: 2012Q2

REPORT INFORMATION
  Report Type: 
  Country: None (occurrence: None)
  Receive Date: 20120627
  Receipt Date: 20120608
  Transmission Date: 20120825
  Serious: Yes (Hospitalization)
  Sender: FDA-Public Use
  Company Number: US-MYLANLABS-2012S1007078

PATIENT
  Sex: Female

DRUGS (2)
  1. XANAX [Concomitant]
     Indication: DEPRESSION
     Route: 048
  2. EMSAM [Suspect]
     Indication: DEPRESSION
     Dosage: QD
     Route: 062
     Dates: start: 20070101

REACTIONS (5)
  - DEHYDRATION [None]
  - HERNIA [None]
  - GASTROINTESTINAL INFECTION [None]
  - WEIGHT DECREASED [None]
  - DRUG EFFECT DECREASED [None]
